FAERS Safety Report 9812978 (Version 2)
Quarter: 2014Q1

REPORT INFORMATION
  Report Type: Spontaneous
  Country: GB (occurrence: None)
  Receive Date: 20140108
  Receipt Date: 20140128
  Transmission Date: 20141002
  Serious: Yes (Hospitalization, Other)
  Sender: FDA-Public Use
  Company Number: ABR_01372_2014

PATIENT
  Age: 78 Year
  Sex: Female
  Weight: 75 kg

DRUGS (17)
  1. ERYTHROMYCIN [Suspect]
     Indication: GASTROINTESTINAL MOTILITY DISORDER
     Dosage: DF
     Dates: start: 20131216, end: 20131220
  2. ERYTHROMYCIN [Suspect]
     Dosage: DF
     Dates: start: 20131216, end: 20131220
  3. BISOPROLOL [Suspect]
     Dosage: DF
  4. DEXDOR [Suspect]
     Indication: SEDATION
     Dosage: DF
     Dates: start: 20131218, end: 20131222
  5. OMEPRAZOLE [Suspect]
     Dosage: DF
  6. CO-AMOXICLAV [Concomitant]
  7. ENOXAPARIN [Concomitant]
  8. FUROSEMIDE [Concomitant]
  9. GABAPENTIN [Concomitant]
  10. PANTOPRAZOLE [Concomitant]
  11. PARACETAMOL [Concomitant]
  12. LANSOPRAZOLE [Concomitant]
  13. NORADRENALINE [Concomitant]
  14. PERINDOPRIL [Concomitant]
  15. PROPOFOL [Concomitant]
  16. REMIFENTANIL [Concomitant]
  17. RIVAROXABAN [Concomitant]

REACTIONS (6)
  - Alanine aminotransferase increased [None]
  - Aspartate aminotransferase increased [None]
  - Blood bilirubin increased [None]
  - Drug interaction [None]
  - Rib fracture [None]
  - Fall [None]
